FAERS Safety Report 18832436 (Version 1)
Quarter: 2021Q1

REPORT INFORMATION
  Report Type: Spontaneous
  Country: US (occurrence: US)
  Receive Date: 20210203
  Receipt Date: 20210203
  Transmission Date: 20210419
  Serious: No
  Sender: FDA-Public Use
  Company Number: US-JNJFOC-20201234492

PATIENT
  Sex: Male

DRUGS (1)
  1. SUDAFED 12 HOUR [Suspect]
     Active Substance: PSEUDOEPHEDRINE HYDROCHLORIDE
     Indication: SINUS CONGESTION
     Route: 065

REACTIONS (6)
  - Nervousness [Unknown]
  - Heart rate increased [Unknown]
  - Chills [Unknown]
  - Anxiety [Unknown]
  - Restlessness [Unknown]
  - Nausea [Unknown]
